FAERS Safety Report 23159412 (Version 1)
Quarter: 2023Q4

REPORT INFORMATION
  Report Type: Spontaneous
  Country: US (occurrence: None)
  Receive Date: 20231107
  Receipt Date: 20231107
  Transmission Date: 20240110
  Serious: Yes (unspecified)
  Sender: FDA-Public Use
  Company Number: None

PATIENT
  Age: 31 Month
  Sex: Male
  Weight: 12.95 kg

DRUGS (2)
  1. ELEXACAFTOR\IVACAFTOR\TEZACAFTOR [Suspect]
     Active Substance: ELEXACAFTOR\IVACAFTOR\TEZACAFTOR
     Dosage: FREQUENCY : TWICE A DAY;?
     Route: 048
     Dates: start: 20230926
  2. TRIKAFTA [Concomitant]
     Active Substance: ELEXACAFTOR\IVACAFTOR\TEZACAFTOR
     Dates: start: 20230926

REACTIONS (3)
  - Erythema [None]
  - Pruritus [None]
  - Skin disorder [None]

NARRATIVE: CASE EVENT DATE: 20230926
